FAERS Safety Report 13297633 (Version 1)
Quarter: 2017Q1

REPORT INFORMATION
  Report Type: Spontaneous
  Country: US (occurrence: US)
  Receive Date: 20170305
  Receipt Date: 20170305
  Transmission Date: 20170428
  Serious: Yes (Hospitalization)
  Sender: FDA-Public Use
  Company Number: None

PATIENT
  Age: 21 Year
  Sex: Female
  Weight: 45 kg

DRUGS (1)
  1. AZO [Suspect]
     Active Substance: PHENAZOPYRIDINE HYDROCHLORIDE
     Indication: BLADDER PAIN

REACTIONS (5)
  - Dizziness [None]
  - Incorrect drug administration duration [None]
  - Dyspnoea [None]
  - Intentional product misuse [None]
  - Ocular icterus [None]

NARRATIVE: CASE EVENT DATE: 20160915
